FAERS Safety Report 21063955 (Version 5)
Quarter: 2023Q1

REPORT INFORMATION
  Report Type: Report from Study
  Country: US (occurrence: US)
  Receive Date: 20220711
  Receipt Date: 20230208
  Transmission Date: 20230418
  Serious: Yes (Hospitalization, Other)
  Sender: FDA-Public Use
  Company Number: US-ABBVIE-22K-163-4458967-00

PATIENT
  Age: 75 Year
  Sex: Male
  Weight: 79 kg

DRUGS (14)
  1. DUOPA [Suspect]
     Active Substance: CARBIDOPA\LEVODOPA
     Indication: Parkinson^s disease
     Route: 050
  2. DUOPA [Suspect]
     Active Substance: CARBIDOPA\LEVODOPA
     Route: 050
     Dates: start: 20171113
  3. DUOPA [Suspect]
     Active Substance: CARBIDOPA\LEVODOPA
     Route: 050
  4. ARICEPT [Concomitant]
     Active Substance: DONEPEZIL HYDROCHLORIDE
     Indication: Dementia
  5. PROSACEA [Concomitant]
     Active Substance: SULFUR
     Indication: Depression
  6. VITAMIN B12 [Concomitant]
     Active Substance: CYANOCOBALAMIN
     Indication: Supplementation therapy
  7. IBUPROFEN [Concomitant]
     Active Substance: IBUPROFEN
     Indication: Pain
  8. PRAMIPEXOLE DIHYDROCHLORIDE [Concomitant]
     Active Substance: PRAMIPEXOLE DIHYDROCHLORIDE
     Indication: Parkinson^s disease
     Route: 048
  9. FLOMAX 4 MG [Concomitant]
     Indication: Product used for unknown indication
     Route: 048
  10. CARBIDOPA LEVODOPA 1 [Concomitant]
     Indication: Product used for unknown indication
     Route: 048
  11. DONEPEZIL HYDROCHLORIDE [Concomitant]
     Active Substance: DONEPEZIL HYDROCHLORIDE
     Indication: Product used for unknown indication
     Route: 048
  12. AMANTADINE [Concomitant]
     Active Substance: AMANTADINE
     Indication: Product used for unknown indication
     Route: 048
  13. TRIHEXYPHENIDYL 2 MG [Concomitant]
     Indication: Product used for unknown indication
     Route: 048
  14. FLUOXETINE HYDROCHLORIDE [Concomitant]
     Active Substance: FLUOXETINE HYDROCHLORIDE
     Indication: Product used for unknown indication
     Route: 048

REACTIONS (13)
  - Upper respiratory tract infection [Unknown]
  - Fall [Unknown]
  - Medical device site irritation [Unknown]
  - Head injury [Unknown]
  - Nasopharyngitis [Recovering/Resolving]
  - Living in residential institution [Unknown]
  - Pneumonia [Recovered/Resolved]
  - Confusional state [Recovering/Resolving]
  - Pneumonia [Unknown]
  - Device dislocation [Not Recovered/Not Resolved]
  - Dyskinesia [Unknown]
  - Medication error [Unknown]
  - Medical device site reaction [Unknown]

NARRATIVE: CASE EVENT DATE: 20220701
